FAERS Safety Report 8484649-5 (Version None)
Quarter: 2012Q3

REPORT INFORMATION
  Report Type: 
  Country: None (occurrence: None)
  Receive Date: 20120703
  Receipt Date: 20120423
  Transmission Date: 20120928
  Serious: No
  Sender: FDA-Public Use
  Company Number: US-TEVA-335097USA

PATIENT
  Sex: Female
  Weight: 97.61 kg

DRUGS (9)
  1. LISINOPRIL [Concomitant]
  2. PRAVASTATIN [Concomitant]
     Route: 048
  3. LEVOTHYROXINE SODIUM [Concomitant]
     Route: 048
  4. PROPRANOLOL [Concomitant]
     Route: 048
  5. FISH OIL [Concomitant]
     Dosage: 2000 MILLIGRAM;
     Route: 048
  6. MEDROXYPROGESTERONE [Concomitant]
     Indication: CONTRACEPTION
     Route: 030
  7. CLOMIPRAMINE HCL [Concomitant]
     Route: 048
  8. PANTOPRAZOLE [Concomitant]
     Dosage: 40 MILLIGRAM;
     Route: 048
  9. NUVIGIL [Suspect]
     Indication: SLEEP APNOEA SYNDROME
     Dosage: 107.1429 MILLIGRAM;
     Route: 048
     Dates: start: 20120402

REACTIONS (1)
  - ORAL MUCOSAL EXFOLIATION [None]
